FAERS Safety Report 7233663-6 (Version None)
Quarter: 2011Q1

REPORT INFORMATION
  Report Type: 
  Country: None (occurrence: None)
  Receive Date: 20110119
  Receipt Date: 20100111
  Transmission Date: 20110831
  Serious: Yes (Other)
  Sender: FDA-Public Use
  Company Number: US-TEVA-220406USA

PATIENT
  Age: 37 Year
  Sex: Female

DRUGS (2)
  1. COPAXONE [Suspect]
     Indication: MULTIPLE SCLEROSIS
     Dates: start: 20020701, end: 20091001
  2. LEVOTHYROXINE SODIUM [Concomitant]
     Indication: THYROID DISORDER

REACTIONS (8)
  - OPTIC NEURITIS [None]
  - HYPERSENSITIVITY [None]
  - FATIGUE [None]
  - INJECTION SITE REACTION [None]
  - MULTIPLE SCLEROSIS RELAPSE [None]
  - LOSS OF CONSCIOUSNESS [None]
  - WEIGHT INCREASED [None]
  - COGNITIVE DISORDER [None]
